FAERS Safety Report 9376935 (Version 1)
Quarter: 2013Q3

REPORT INFORMATION
  Report Type: Spontaneous
  Country: FR (occurrence: FR)
  Receive Date: 20130701
  Receipt Date: 20130701
  Transmission Date: 20140515
  Serious: Yes (Hospitalization)
  Sender: FDA-Public Use
  Company Number: PHHY2013FR066914

PATIENT
  Age: 51 Year
  Sex: Female

DRUGS (7)
  1. EXFORGE [Suspect]
     Indication: HYPERTENSION
     Route: 048
     Dates: start: 200909, end: 20100126
  2. TAGAMET [Suspect]
     Indication: INDUCTION OF ANAESTHESIA
     Route: 042
     Dates: start: 20100121, end: 20100121
  3. DIAMICRON [Suspect]
     Indication: TYPE 2 DIABETES MELLITUS
     Route: 048
     Dates: start: 200909
  4. LIPANTHYL [Suspect]
     Indication: DYSLIPIDAEMIA
     Dosage: UNK
     Dates: start: 200909
  5. DIPRIVAN [Suspect]
     Indication: INDUCTION OF ANAESTHESIA
     Route: 042
     Dates: start: 20100121, end: 20100121
  6. EPHEDRINE [Suspect]
     Indication: INDUCTION OF ANAESTHESIA
     Route: 042
     Dates: start: 20100121, end: 20100121
  7. MORPHINE [Suspect]
     Indication: PAIN
     Dosage: UNK
     Dates: start: 20100122, end: 20100122

REACTIONS (4)
  - Haemolytic anaemia [Unknown]
  - Renal failure acute [Recovered/Resolved]
  - Vomiting [Unknown]
  - Oliguria [Unknown]
